FAERS Safety Report 9594815 (Version 1)
Quarter: 2013Q4

REPORT INFORMATION
  Report Type: Report from Study
  Country: IR (occurrence: IR)
  Receive Date: 20131004
  Receipt Date: 20131004
  Transmission Date: 20140711
  Serious: Yes (Other)
  Sender: FDA-Public Use
  Company Number: IR-SA-2013SA097614

PATIENT
  Sex: 0

DRUGS (5)
  1. CAPECITABINE [Suspect]
     Indication: ADENOCARCINOMA GASTRIC
     Route: 048
  2. DOCETAXEL [Suspect]
     Indication: ADENOCARCINOMA GASTRIC
     Dosage: 1ST DAY OF THREE WEEK CYCLE OVER 1 HOUR
     Route: 042
  3. OXALIPLATIN [Suspect]
     Indication: ADENOCARCINOMA GASTRIC
     Dosage: 1ST DAY OF THREE WEEK CYCLE OVER 2 HOURS
     Route: 042
  4. GRANISETRON [Concomitant]
     Indication: ANTIEMETIC SUPPORTIVE CARE
  5. DEXAMETHASONE [Concomitant]
     Indication: ANTIEMETIC SUPPORTIVE CARE
     Route: 042

REACTIONS (1)
  - Cerebrovascular accident [Unknown]
